FAERS Safety Report 14347665 (Version 1)
Quarter: 2018Q1

REPORT INFORMATION
  Report Type: Spontaneous
  Country: US (occurrence: US)
  Receive Date: 20180103
  Receipt Date: 20180103
  Transmission Date: 20180509
  Serious: No
  Sender: FDA-Public Use
  Company Number: US-PFIZER INC-2017555101

PATIENT
  Age: 51 Year
  Sex: Female
  Weight: 83.46 kg

DRUGS (1)
  1. IBRANCE [Suspect]
     Active Substance: PALBOCICLIB
     Indication: LEUKAEMIA
     Dosage: 125 MG, CYCLIC (125MG CAPSULE ONCE DAILY)
     Dates: start: 201710, end: 201711

REACTIONS (3)
  - Protein urine present [Unknown]
  - Neoplasm progression [Unknown]
  - Product use in unapproved indication [Unknown]
